FAERS Safety Report 25199310 (Version 2)
Quarter: 2025Q2

REPORT INFORMATION
  Report Type: Spontaneous
  Country: AR (occurrence: AR)
  Receive Date: 20250415
  Receipt Date: 20250520
  Transmission Date: 20250716
  Serious: Yes (Life-Threatening)
  Sender: SANDOZ
  Company Number: AR-002147023-NVSC2025AR060880

PATIENT
  Age: 49 Year
  Sex: Female

DRUGS (4)
  1. FULVESTRANT [Suspect]
     Active Substance: FULVESTRANT
     Indication: Breast cancer metastatic
     Route: 065
     Dates: start: 20250129
  2. KISQALI [Suspect]
     Active Substance: RIBOCICLIB SUCCINATE
     Dosage: 2 (200MG TABLETS) (400 MG), BOTH TABLETS AT THE SAME TIME
     Route: 065
  3. KISQALI [Suspect]
     Active Substance: RIBOCICLIB SUCCINATE
     Indication: Breast cancer metastatic
     Route: 065
     Dates: start: 20250129, end: 202502
  4. KISQALI [Suspect]
     Active Substance: RIBOCICLIB SUCCINATE
     Route: 065

REACTIONS (5)
  - Suicidal ideation [Unknown]
  - Self esteem decreased [Unknown]
  - White blood cell count decreased [Unknown]
  - Anger [Unknown]
  - Product supply issue [Unknown]

NARRATIVE: CASE EVENT DATE: 20250201
